FAERS Safety Report 25995768 (Version 2)
Quarter: 2025Q4

REPORT INFORMATION
  Report Type: Report from Study
  Country: PR (occurrence: PR)
  Receive Date: 20251104
  Receipt Date: 20251110
  Transmission Date: 20260118
  Serious: No
  Sender: ABBVIE
  Company Number: PR-ABBVIE-6523709

PATIENT
  Sex: Male

DRUGS (2)
  1. HUMIRA [Suspect]
     Active Substance: ADALIMUMAB
     Indication: Psoriasis
     Dosage: CITRATE FREE, SOLUTION FOR INJECTION IN PRE-FILLED PEN
     Route: 058
     Dates: start: 20180509, end: 20240903
  2. SKYRIZI [Suspect]
     Active Substance: RISANKIZUMAB-RZAA
     Indication: Psoriasis
     Route: 058
     Dates: start: 20240731

REACTIONS (1)
  - Visual impairment [Unknown]
